FAERS Safety Report 7757960-0 (Version None)
Quarter: 2011Q3

REPORT INFORMATION
  Report Type: 
  Country: None (occurrence: None)
  Receive Date: 20110919
  Receipt Date: 20110909
  Transmission Date: 20111222
  Serious: Yes (Death, Hospitalization)
  Sender: FDA-Public Use
  Company Number: AR-BIOGENIDEC-2011BI023838

PATIENT
  Age: 58 Year
  Sex: Male

DRUGS (6)
  1. TAMSULOSIN (REDUPROST) [Concomitant]
     Route: 048
  2. AVONEX [Suspect]
     Indication: MULTIPLE SCLEROSIS
     Route: 030
     Dates: start: 20110623, end: 20110623
  3. CARVEDILOL (CARVEDIL) [Concomitant]
     Route: 048
  4. DIOVAN [Concomitant]
     Route: 048
  5. BACLOFEN [Concomitant]
     Route: 048
  6. ASPIRIN (ASPIRINETAS) [Concomitant]
     Route: 048

REACTIONS (2)
  - INTRACRANIAL PRESSURE INCREASED [None]
  - HAEMORRHAGIC STROKE [None]
